FAERS Safety Report 7562562-5 (Version None)
Quarter: 2011Q2

REPORT INFORMATION
  Report Type: 
  Country: None (occurrence: None)
  Receive Date: 20110622
  Receipt Date: 20110610
  Transmission Date: 20111010
  Serious: Yes (Hospitalization)
  Sender: FDA-Public Use
  Company Number: IL-JNJFOC-20110401728

PATIENT
  Sex: Female
  Weight: 64.5 kg

DRUGS (8)
  1. GOLIMUMAB [Suspect]
     Route: 058
     Dates: start: 20110411
  2. GOLIMUMAB [Suspect]
     Route: 058
     Dates: start: 20101229
  3. GOLIMUMAB [Suspect]
     Route: 058
     Dates: start: 20090929
  4. GOLIMUMAB [Suspect]
     Route: 058
     Dates: start: 20110321
  5. DIPYRONE [Concomitant]
     Route: 048
  6. ICHTHYOL [Concomitant]
     Route: 061
     Dates: start: 20091216
  7. GOLIMUMAB [Suspect]
     Indication: COLITIS ULCERATIVE
     Route: 058
     Dates: start: 20100316
  8. SIMVASTATIN [Concomitant]
     Route: 048
     Dates: start: 20071101

REACTIONS (1)
  - COLITIS ULCERATIVE [None]
